FAERS Safety Report 10159521 (Version 2)
Quarter: 2014Q2

REPORT INFORMATION
  Report Type: Report from Study
  Country: US (occurrence: US)
  Receive Date: 20140508
  Receipt Date: 20140508
  Transmission Date: 20141212
  Serious: Yes (Hospitalization, Other)
  Sender: FDA-Public Use
  Company Number: US-BAYER-2014-029195

PATIENT
  Age: 66 Year
  Sex: Male

DRUGS (2)
  1. NEXAVAR [Suspect]
     Indication: LUNG NEOPLASM MALIGNANT
     Dosage: 400 MG, BID
     Route: 048
     Dates: start: 20130410
  2. NEXAVAR [Suspect]
     Indication: METASTASIS

REACTIONS (6)
  - Pelvic neoplasm [None]
  - Metastases to lymph nodes [None]
  - Gastric ulcer [None]
  - Haemorrhage [None]
  - Platelet count decreased [None]
  - Off label use [None]
